FAERS Safety Report 26140076 (Version 1)
Quarter: 2025Q4

REPORT INFORMATION
  Report Type: Spontaneous
  Country: US (occurrence: None)
  Receive Date: 20251209
  Receipt Date: 20251209
  Transmission Date: 20260117
  Serious: Yes (Death)
  Sender: FDA-CTU
  Company Number: None

PATIENT
  Age: 86 Year
  Sex: Male
  Weight: 68.85 kg

DRUGS (10)
  1. LENALIDOMIDE [Suspect]
     Active Substance: LENALIDOMIDE
     Indication: Diffuse large B-cell lymphoma
     Dosage: FREQUENCY : DAILY;
     Route: 048
     Dates: start: 20251104, end: 20251206
  2. COMPAZINE [Concomitant]
     Active Substance: PROCHLORPERAZINE MALEATE
  3. DEXAMETHASONE [Concomitant]
     Active Substance: DEXAMETHASONE
  4. EZETIMIBE [Concomitant]
     Active Substance: EZETIMIBE
  5. FAMOTIDINE [Concomitant]
     Active Substance: FAMOTIDINE
  6. GABAPENTIN [Concomitant]
     Active Substance: GABAPENTIN
  7. LORATADINE [Concomitant]
     Active Substance: LORATADINE
  8. PREDNISONE [Concomitant]
     Active Substance: PREDNISONE
  9. ROSUVASTATIN [Concomitant]
     Active Substance: ROSUVASTATIN
  10. TRAMADOL [Concomitant]
     Active Substance: TRAMADOL

REACTIONS (1)
  - Death [None]

NARRATIVE: CASE EVENT DATE: 20251206
